FAERS Safety Report 8425973-1 (Version None)
Quarter: 2012Q2

REPORT INFORMATION
  Report Type: 
  Country: None (occurrence: None)
  Receive Date: 20120606
  Receipt Date: 20120606
  Transmission Date: 20120825
  Serious: Yes (Other)
  Sender: FDA-Public Use
  Company Number: None

PATIENT
  Sex: Male

DRUGS (1)
  1. AFINITOR 10MG TAB NOVARTIS [Suspect]
     Dosage: 10MG DAILY PO
     Route: 048
     Dates: start: 20120501

REACTIONS (4)
  - NAUSEA [None]
  - DIZZINESS [None]
  - MOBILITY DECREASED [None]
  - PAIN [None]
